FAERS Safety Report 5502476-5 (Version None)
Quarter: 2007Q4

REPORT INFORMATION
  Report Type: 
  Country: None (occurrence: None)
  Receive Date: 20071030
  Receipt Date: 20071018
  Transmission Date: 20080405
  Serious: Yes (Hospitalization)
  Sender: FDA-Public Use
  Company Number: US-PFIZER INC-2007088578

PATIENT
  Sex: Female
  Weight: 22.7 kg

DRUGS (6)
  1. AMLODIPINE [Suspect]
     Indication: HYPERTENSION
     Route: 048
     Dates: start: 20040501, end: 20071002
  2. ENALAPRIL MALEATE [Suspect]
     Indication: HYPERTENSION
     Dosage: TEXT:1 TABLET-FREQ:FREQUENCY: DAILY
     Route: 048
     Dates: start: 20040501, end: 20060601
  3. ENALAPRIL MALEATE [Suspect]
     Dates: start: 20070907, end: 20071002
  4. PREVACID [Suspect]
     Dates: start: 20040101, end: 20060601
  5. PREDNISOLONE [Concomitant]
  6. CYCLOSPORINE [Concomitant]

REACTIONS (7)
  - BACTERAEMIA [None]
  - DRUG HYPERSENSITIVITY [None]
  - NEUTROPENIA [None]
  - RESPIRATORY SYNCYTIAL VIRUS INFECTION [None]
  - SEPSIS [None]
  - SKIN LESION [None]
  - STAPHYLOCOCCAL SEPSIS [None]
